FAERS Safety Report 6583476-3 (Version None)
Quarter: 2010Q1

REPORT INFORMATION
  Report Type: 
  Country: None (occurrence: None)
  Receive Date: 20100216
  Receipt Date: 20100202
  Transmission Date: 20100710
  Serious: Yes (Hospitalization)
  Sender: FDA-Public Use
  Company Number: NL-MEDIMMUNE-MEDI-0010500

PATIENT
  Sex: Female
  Weight: 2.35 kg

DRUGS (1)
  1. SYNAGIS [Suspect]
     Route: 030
     Dates: start: 20100106, end: 20100106

REACTIONS (4)
  - CARDIAC MURMUR [None]
  - CYANOSIS [None]
  - RESPIRATORY SYNCYTIAL VIRUS INFECTION [None]
  - VOMITING [None]
